FAERS Safety Report 6799688-X (Version None)
Quarter: 2010Q2

REPORT INFORMATION
  Report Type: 
  Country: None (occurrence: None)
  Receive Date: 20100624
  Receipt Date: 20100413
  Transmission Date: 20101027
  Serious: Yes (Other)
  Sender: FDA-Public Use
  Company Number: 8045754

PATIENT
  Sex: Female

DRUGS (4)
  1. KEPPRA [Suspect]
     Indication: CONVULSION
     Dosage: (750 MG BID)
     Dates: start: 20070101
  2. PREDNISONE TAB [Concomitant]
  3. ASPIRIN /01428701/ [Concomitant]
  4. SULFAMIDE [Concomitant]

REACTIONS (3)
  - DRUG EXPOSURE DURING PREGNANCY [None]
  - PRE-ECLAMPSIA [None]
  - UNINTENDED PREGNANCY [None]
